FAERS Safety Report 21257312 (Version 1)
Quarter: 2022Q3

REPORT INFORMATION
  Report Type: Spontaneous
  Country: FR (occurrence: FR)
  Receive Date: 20220826
  Receipt Date: 20220826
  Transmission Date: 20221027
  Serious: Yes (Other)
  Sender: FDA-Public Use
  Company Number: FR-BAUSCH-BL-2022-020702

PATIENT
  Age: 53 Year
  Sex: Female

DRUGS (5)
  1. DEXAMETHASONE [Suspect]
     Active Substance: DEXAMETHASONE
     Indication: Chorioretinitis
     Route: 065
     Dates: start: 201911
  2. IPILIMUMAB [Concomitant]
     Active Substance: IPILIMUMAB
     Indication: Metastatic malignant melanoma
     Dosage: FOUR CYCLES
     Dates: start: 201908, end: 201911
  3. NIVOLUMAB [Concomitant]
     Active Substance: NIVOLUMAB
     Indication: Metastatic malignant melanoma
     Dosage: FOUR CYCLES
     Dates: start: 201908, end: 201911
  4. PREDNISONE [Concomitant]
     Active Substance: PREDNISONE
     Indication: Deafness bilateral
     Dates: start: 201911
  5. PREDNISONE [Concomitant]
     Active Substance: PREDNISONE
     Dosage: GRADUAL DOSE TAPERING

REACTIONS (4)
  - Papilloedema [Unknown]
  - Retinal vasculitis [Unknown]
  - Drug resistance [Unknown]
  - Therapy partial responder [Unknown]

NARRATIVE: CASE EVENT DATE: 20190101
